FAERS Safety Report 21855964 (Version 2)
Quarter: 2023Q1

REPORT INFORMATION
  Report Type: Spontaneous
  Country: US (occurrence: US)
  Receive Date: 20230112
  Receipt Date: 20230123
  Transmission Date: 20230417
  Serious: Yes (Hospitalization, Other)
  Sender: FDA-Public Use
  Company Number: US-TEVA-2023-US-2843076

PATIENT
  Age: 56 Year
  Sex: Female

DRUGS (7)
  1. DOXORUBICIN [Suspect]
     Active Substance: DOXORUBICIN
     Indication: Diffuse large B-cell lymphoma
     Route: 065
  2. VINCRISTINE [Suspect]
     Active Substance: VINCRISTINE
     Indication: Diffuse large B-cell lymphoma
     Route: 065
  3. PREDNISONE [Suspect]
     Active Substance: PREDNISONE
     Indication: Diffuse large B-cell lymphoma
     Route: 065
  4. LENALIDOMIDE [Suspect]
     Active Substance: LENALIDOMIDE
     Indication: Diffuse large B-cell lymphoma
     Dosage: 5 MILLIGRAM DAILY; ON DAYS 1-21 OF A 28-DAY CYCLE.
     Route: 048
  5. RITUXIMAB [Suspect]
     Active Substance: RITUXIMAB
     Indication: Diffuse large B-cell lymphoma
     Route: 065
  6. CYCLOPHOSPHAMIDE [Suspect]
     Active Substance: CYCLOPHOSPHAMIDE
     Indication: Diffuse large B-cell lymphoma
     Route: 065
  7. TAFASITAMAB [Concomitant]
     Active Substance: TAFASITAMAB
     Indication: Diffuse large B-cell lymphoma
     Dosage: CYCLE 1 WAS ADMINISTERED ON DAYS 1, 5, 8, 15, AND 22; THE SECOND DOSE WAS GIVEN ON DAY 5 INSTEAD ...
     Route: 042

REACTIONS (6)
  - Febrile neutropenia [Unknown]
  - Gastrointestinal haemorrhage [Unknown]
  - Anaemia [Unknown]
  - Thrombocytopenia [Unknown]
  - Neutropenia [Unknown]
  - Drug ineffective [Unknown]
